FAERS Safety Report 6609079-X (Version None)
Quarter: 2010Q1

REPORT INFORMATION
  Report Type: 
  Country: None (occurrence: None)
  Receive Date: 20100301
  Receipt Date: 20100218
  Transmission Date: 20100710
  Serious: Yes (Hospitalization)
  Sender: FDA-Public Use
  Company Number: US-ELI_LILLY_AND_COMPANY-US201002005923

PATIENT
  Sex: Male

DRUGS (2)
  1. CYMBALTA [Suspect]
     Indication: FIBROMYALGIA
     Dosage: 30 MG, UNK
     Dates: start: 20090101
  2. CYMBALTA [Suspect]
     Dosage: 60 MG, UNK
     Dates: start: 20090101

REACTIONS (3)
  - ERYTHEMA [None]
  - PRURITUS [None]
  - ROTATOR CUFF REPAIR [None]
